FAERS Safety Report 7292863-X (Version None)
Quarter: 2011Q1

REPORT INFORMATION
  Report Type: 
  Country: None (occurrence: None)
  Receive Date: 20110204
  Receipt Date: 20100409
  Transmission Date: 20110831
  Serious: Yes (Hospitalization, Disabling, Other)
  Sender: FDA-Public Use
  Company Number: 2010SP020851

PATIENT
  Age: 22 Year
  Sex: Female
  Weight: 108.8633 kg

DRUGS (1)
  1. NUVARING [Suspect]
     Indication: CONTRACEPTION
     Dates: start: 20090401, end: 20100101

REACTIONS (3)
  - PULMONARY EMBOLISM [None]
  - HEART RATE IRREGULAR [None]
  - PNEUMONIA [None]
